FAERS Safety Report 4732972-X (Version None)
Quarter: 2005Q3

REPORT INFORMATION
  Report Type: 
  Country: None (occurrence: None)
  Receive Date: 20050801
  Receipt Date: 20050721
  Transmission Date: 20060218
  Serious: Yes (Hospitalization, Other)
  Sender: FDA-Public Use
  Company Number: 2005022077

PATIENT
  Age: 61 Year
  Sex: Male

DRUGS (8)
  1. CELEBREX [Suspect]
     Indication: ARTHRALGIA
     Dosage: ORAL
     Route: 048
     Dates: start: 20040521, end: 20040617
  2. PANTOPRAZOLE SODIUM [Suspect]
     Indication: ILL-DEFINED DISORDER
     Dosage: ORAL
     Route: 048
     Dates: start: 20040521, end: 20050617
  3. ACETAMINOPHEN W/ PROPOXYPHENE HCL [Concomitant]
  4. TAMSULOSIN HCL [Concomitant]
  5. CITALOPRAM (CITALOPRAM) [Concomitant]
  6. DAFLON (DIOSMIN) [Concomitant]
  7. GALLENIC/CANDESARTAN/HYDROCHLOROTHIAZIDE/ (DANDESARTAN CILEXETIL, HYDR [Concomitant]
  8. ACETAMINOPHEN [Concomitant]

REACTIONS (9)
  - CHOLESTASIS [None]
  - CYTOLYTIC HEPATITIS [None]
  - DYSPHAGIA [None]
  - GENITAL EROSION [None]
  - HEPATOCELLULAR DAMAGE [None]
  - RED BLOOD CELL SEDIMENTATION RATE INCREASED [None]
  - RENAL FAILURE ACUTE [None]
  - STAPHYLOCOCCAL INFECTION [None]
  - TOXIC EPIDERMAL NECROLYSIS [None]
